FAERS Safety Report 23218191 (Version 1)
Quarter: 2023Q4

REPORT INFORMATION
  Report Type: Spontaneous
  Country: IT (occurrence: IT)
  Receive Date: 20231122
  Receipt Date: 20231122
  Transmission Date: 20240109
  Serious: Yes (Other)
  Sender: FDA-Public Use
  Company Number: IT-AMGEN-ITASP2023205678

PATIENT
  Age: 65 Year
  Sex: Female
  Weight: 68 kg

DRUGS (1)
  1. PROLIA [Suspect]
     Active Substance: DENOSUMAB
     Indication: Osteoporosis
     Dosage: 60 MILLIGRAM PER MILLILITRE, Q6MO (PROLIA 60 MG/ML 1 VIAL EVERY 6 MONTHS)
     Route: 058
     Dates: start: 20190905, end: 20230301

REACTIONS (1)
  - Periodontitis [Recovered/Resolved with Sequelae]

NARRATIVE: CASE EVENT DATE: 20230301
